FAERS Safety Report 20475501 (Version 1)
Quarter: 2022Q1

REPORT INFORMATION
  Report Type: Spontaneous
  Country: US (occurrence: None)
  Receive Date: 20220214
  Receipt Date: 20220214
  Transmission Date: 20220423
  Serious: No
  Sender: FDA-Public Use
  Company Number: None

PATIENT
  Age: 61 Year
  Sex: Female
  Weight: 60.78 kg

DRUGS (19)
  1. IMATINIB MESYLATE [Suspect]
     Active Substance: IMATINIB MESYLATE
     Indication: Neoplasm malignant
     Dosage: FREQUENCY : DAILY;?
     Route: 048
  2. ALBUTEROL [Concomitant]
  3. ANORO ELLIPTA [Concomitant]
  4. ASPIRIN [Concomitant]
     Active Substance: ASPIRIN
  5. ATORVASTATIN [Concomitant]
  6. BENADRYL [Concomitant]
  7. BUTALBITAL-ASA-CAFFEINE [Concomitant]
  8. BYSTOLIC [Concomitant]
  9. CENTRUM [Concomitant]
  10. ESCITALOPRAM [Concomitant]
  11. FAMOTIDINE [Concomitant]
  12. FLOVENT [Concomitant]
     Active Substance: FLUTICASONE PROPIONATE
  13. GLIMEPIRIDE [Concomitant]
  14. IRBESARTA-HCTZ [Concomitant]
  15. POTASSIUM CHLORIDE ER [Concomitant]
  16. PROAIR HFA [Concomitant]
  17. TOPIRAMATE [Concomitant]
  18. VITAMIN D3 [Concomitant]
  19. DOCUSATE [Concomitant]

REACTIONS (1)
  - Blood potassium abnormal [None]
